FAERS Safety Report 24059663 (Version 2)
Quarter: 2024Q3

REPORT INFORMATION
  Report Type: Spontaneous
  Country: US (occurrence: US)
  Receive Date: 20240708
  Receipt Date: 20240722
  Transmission Date: 20241017
  Serious: Yes (Other)
  Sender: SANOFI AVENTIS
  Company Number: US-SA-SAC20240705000254

PATIENT
  Age: 26 Year
  Sex: Male

DRUGS (4)
  1. ELOCTATE [Suspect]
     Active Substance: EFMOROCTOCOG ALFA
     Indication: Factor VIII deficiency
     Dosage: 4000 UNIT: INFUSE 4336 UNITS INTRAVENOUSLY AS NEEDED/EPISODIC FOR BLEEDING FOR 4 DOSES. TARGET DOSE
     Route: 042
     Dates: start: 2022, end: 202207
  2. ELOCTATE [Suspect]
     Active Substance: EFMOROCTOCOG ALFA
     Indication: Factor VIII deficiency
     Dosage: 4000 UNIT: INFUSE 4336 UNITS INTRAVENOUSLY AS NEEDED/EPISODIC FOR BLEEDING FOR 4 DOSES. TARGET DOSE
     Route: 042
     Dates: start: 2022, end: 202207
  3. IRON [Concomitant]
     Active Substance: IRON
     Indication: Anaemia
     Dosage: UNK
  4. VITAMINS NOS [Concomitant]
     Active Substance: VITAMINS
     Dosage: UNK UNK, QD

REACTIONS (8)
  - Muscle haemorrhage [Unknown]
  - Pain in extremity [Unknown]
  - Muscle strain [Not Recovered/Not Resolved]
  - Arthralgia [Not Recovered/Not Resolved]
  - Back pain [Not Recovered/Not Resolved]
  - Pain in extremity [Not Recovered/Not Resolved]
  - Muscle spasms [Not Recovered/Not Resolved]
  - Joint injury [Unknown]

NARRATIVE: CASE EVENT DATE: 20220101
